FAERS Safety Report 5906951-0 (Version None)
Quarter: 2008Q4

REPORT INFORMATION
  Report Type: 
  Country: None (occurrence: None)
  Receive Date: 20081003
  Receipt Date: 20080923
  Transmission Date: 20090506
  Serious: Yes (Other)
  Sender: FDA-Public Use
  Company Number: FR-JNJFOC-20080905585

PATIENT
  Sex: Female

DRUGS (1)
  1. HALDOL [Suspect]
     Indication: BIPOLAR I DISORDER

REACTIONS (1)
  - HEPATITIS [None]
